FAERS Safety Report 4758699-6 (Version None)
Quarter: 2005Q3

REPORT INFORMATION
  Report Type: 
  Country: None (occurrence: None)
  Receive Date: 20050826
  Receipt Date: 20050811
  Transmission Date: 20060218
  Serious: Yes (Death, Hospitalization)
  Sender: FDA-Public Use
  Company Number: P200500018

PATIENT
  Age: 63 Year
  Sex: Male
  Weight: 56.7 kg

DRUGS (6)
  1. PLENAXIS [Suspect]
     Indication: PROSTATE CANCER
     Dosage: 100 MG, SINGLE, INTRAMUSCULAR
     Route: 030
     Dates: start: 20050218, end: 20050218
  2. ALBUTEROL [Concomitant]
  3. THIAMINE (THIAMINE) [Concomitant]
  4. FOLIC ACID [Concomitant]
  5. FLOVENT [Concomitant]
  6. NICODERM [Concomitant]

REACTIONS (10)
  - ATRIAL FIBRILLATION [None]
  - BACTERAEMIA [None]
  - CARDIAC ARREST [None]
  - CHRONIC OBSTRUCTIVE PULMONARY DISEASE [None]
  - DIALYSIS [None]
  - GENERAL PHYSICAL HEALTH DETERIORATION [None]
  - LUNG INFECTION PSEUDOMONAL [None]
  - PROSTATE CANCER METASTATIC [None]
  - RENAL TUBULAR NECROSIS [None]
  - RESPIRATORY FAILURE [None]
